FAERS Safety Report 24071310 (Version 1)
Quarter: 2024Q3

REPORT INFORMATION
  Report Type: Report from Study
  Country: GR (occurrence: GR)
  Receive Date: 20240710
  Receipt Date: 20240710
  Transmission Date: 20241016
  Serious: No
  Sender: ROCHE
  Company Number: GR-ROCHE-3422084

PATIENT
  Sex: Male
  Weight: 68.0 kg

DRUGS (1)
  1. EVRYSDI [Suspect]
     Active Substance: RISDIPLAM
     Indication: Spinal muscular atrophy
     Dosage: 6.6 ML
     Route: 065
     Dates: start: 202208, end: 202404

REACTIONS (2)
  - Treatment noncompliance [Unknown]
  - Intentional product misuse [Unknown]
